FAERS Safety Report 4923299-1 (Version None)
Quarter: 2006Q1

REPORT INFORMATION
  Report Type: 
  Country: None (occurrence: None)
  Receive Date: 20060223
  Receipt Date: 20060223
  Transmission Date: 20060701
  Serious: Yes (Hospitalization)
  Sender: FDA-Public Use
  Company Number: None

PATIENT
  Sex: Male
  Weight: 86.637 kg

DRUGS (5)
  1. TEQUIN [Suspect]
     Indication: CATHETER REMOVAL
     Dosage: ONCE DAILY PO
     Route: 048
     Dates: start: 20060209, end: 20060210
  2. TEQUIN [Suspect]
     Indication: PROPHYLAXIS
     Dosage: ONCE DAILY PO
     Route: 048
     Dates: start: 20060209, end: 20060210
  3. PROTONIX [Concomitant]
  4. MAVIK [Concomitant]
  5. AMARYL [Concomitant]

REACTIONS (13)
  - BLOOD GLUCOSE FLUCTUATION [None]
  - CARDIAC FAILURE CONGESTIVE [None]
  - CONDITION AGGRAVATED [None]
  - CONFUSIONAL STATE [None]
  - CONVULSION [None]
  - DEPRESSED LEVEL OF CONSCIOUSNESS [None]
  - DIALYSIS [None]
  - DRUG EFFECT DECREASED [None]
  - DYSPNOEA [None]
  - HYPOGLYCAEMIA [None]
  - JOINT SWELLING [None]
  - RENAL FAILURE ACUTE [None]
  - TIC [None]
